FAERS Safety Report 24115019 (Version 1)
Quarter: 2024Q3

REPORT INFORMATION
  Report Type: Spontaneous
  Country: US (occurrence: US)
  Receive Date: 20240721
  Receipt Date: 20240721
  Transmission Date: 20241017
  Serious: No
  Sender: NOVO NORDISK
  Company Number: US-NOVOPROD-1166469

PATIENT
  Age: 51 Year
  Sex: Female

DRUGS (3)
  1. WEGOVY [Suspect]
     Active Substance: SEMAGLUTIDE
     Indication: Glycosylated haemoglobin
     Dosage: EVERY 7 TO 10 DAYS
     Route: 058
     Dates: start: 20230206, end: 20240102
  2. WEGOVY [Suspect]
     Active Substance: SEMAGLUTIDE
     Indication: Low density lipoprotein
  3. WEGOVY [Suspect]
     Active Substance: SEMAGLUTIDE
     Indication: Weight control

REACTIONS (3)
  - Anxiety [Not Recovered/Not Resolved]
  - Claustrophobia [Not Recovered/Not Resolved]
  - Off label use [Unknown]

NARRATIVE: CASE EVENT DATE: 20230808
